FAERS Safety Report 5355769-9 (Version None)
Quarter: 2007Q2

REPORT INFORMATION
  Report Type: 
  Country: None (occurrence: None)
  Receive Date: 20070611
  Receipt Date: 20070611
  Transmission Date: 20071010
  Serious: Yes (Death)
  Sender: FDA-Public Use
  Company Number: None

PATIENT
  Age: 88 Year
  Sex: Female
  Weight: 63.5036 kg

DRUGS (1)
  1. RISPERDAL [Suspect]
     Indication: VASCULAR DEMENTIA
     Dosage: LOW
     Dates: start: 20070511, end: 20070513

REACTIONS (1)
  - CEREBROVASCULAR ACCIDENT [None]
